FAERS Safety Report 5819187-9 (Version None)
Quarter: 2008Q3

REPORT INFORMATION
  Report Type: 
  Country: None (occurrence: None)
  Receive Date: 20080723
  Receipt Date: 20080718
  Transmission Date: 20090109
  Serious: Yes (Death)
  Sender: FDA-Public Use
  Company Number: B0529783A

PATIENT
  Age: 4 Month

DRUGS (1)
  1. RETROVIR [Suspect]
     Indication: HIV INFECTION

REACTIONS (4)
  - DRUG EXPOSURE DURING PREGNANCY [None]
  - HUMERUS FRACTURE [None]
  - PULMONARY HYPERTENSION [None]
  - RESPIRATORY DISORDER [None]
